FAERS Safety Report 17777181 (Version 1)
Quarter: 2020Q2

REPORT INFORMATION
  Report Type: Report from Study
  Country: US (occurrence: US)
  Receive Date: 20200513
  Receipt Date: 20200513
  Transmission Date: 20200714
  Serious: No
  Sender: FDA-Public Use
  Company Number: US-ACADIA PHARMACEUTICALS INC.-ACA-2019-014454

PATIENT
  Sex: Female

DRUGS (3)
  1. NUPLAZID [Suspect]
     Active Substance: PIMAVANSERIN TARTRATE
     Dosage: 34 MG CAPSULE, QD AND SINCE APR-2019 ALSO STARTED 10 MG TABLET (TOTAL DOSE 44 MG)
     Route: 048
     Dates: start: 201904
  2. NUPLAZID [Suspect]
     Active Substance: PIMAVANSERIN TARTRATE
     Indication: PARKINSON^S DISEASE
     Dosage: 10 MG TABLET, QD AND 34 MG QD CAPSULE (TOTAL DOSE 44 MG)
     Route: 048
     Dates: start: 201904
  3. NUPLAZID [Suspect]
     Active Substance: PIMAVANSERIN TARTRATE
     Indication: PARKINSON^S DISEASE
     Dosage: 34 MG QD
     Route: 048
     Dates: start: 201811

REACTIONS (3)
  - Overdose [Unknown]
  - Anger [Unknown]
  - Product dose omission [Unknown]

NARRATIVE: CASE EVENT DATE: 2019
